FAERS Safety Report 9057310 (Version 1)
Quarter: 2013Q1

REPORT INFORMATION
  Report Type: Other
  Country: JP (occurrence: JP)
  Receive Date: 20130131
  Receipt Date: 20130131
  Transmission Date: 20140127
  Serious: Yes (Death)
  Sender: FDA-Public Use
  Company Number: JP-BRISTOL-MYERS SQUIBB COMPANY-17312620

PATIENT
  Age: 16 Month
  Sex: Male

DRUGS (3)
  1. ETOPOSIDE [Suspect]
     Indication: HEPATOBLASTOMA
  2. CISPLATIN [Suspect]
     Indication: HEPATOBLASTOMA
  3. PIRARUBICIN [Suspect]
     Indication: HEPATOBLASTOMA

REACTIONS (1)
  - Pulmonary haemorrhage [Fatal]
